FAERS Safety Report 25997941 (Version 1)
Quarter: 2025Q4

REPORT INFORMATION
  Report Type: Spontaneous
  Country: EU (occurrence: EU)
  Receive Date: 20251105
  Receipt Date: 20251105
  Transmission Date: 20260117
  Serious: Yes (Disabling)
  Sender: CHEPLAPHARM
  Company Number: None

PATIENT
  Age: 70 Year
  Sex: Female

DRUGS (9)
  1. OLANZAPINE [Suspect]
     Active Substance: OLANZAPINE
     Dosage: DAILY DOSE: 5 MILLIGRAM
  2. TRILEPTAL [Suspect]
     Active Substance: OXCARBAZEPINE
     Dosage: DAILY DOSE: 600 MILLIGRAM
  3. Litarex [Concomitant]
     Dosage: DAILY DOSE: 84 MILLIGRAM
  4. CLOPIDOGREL [Concomitant]
     Active Substance: CLOPIDOGREL BISULFATE
     Dosage: DAILY DOSE: 75 MILLIGRAM
  5. INDERAL [Concomitant]
     Active Substance: PROPRANOLOL HYDROCHLORIDE
     Dosage: DAILY DOSE: 10 MILLIGRAM
  6. Beviplex forte [Concomitant]
     Dosage: 1
  7. PROPIOMAZINE [Concomitant]
     Active Substance: PROPIOMAZINE
     Dosage: DAILY DOSE: 50 MILLIGRAM
  8. FOLIC ACID [Concomitant]
     Active Substance: FOLIC ACID
  9. ZOPICLONE [Concomitant]
     Active Substance: ZOPICLONE

REACTIONS (2)
  - Balance disorder [Not Recovered/Not Resolved]
  - Fall [Not Recovered/Not Resolved]
